FAERS Safety Report 5348899-9 (Version None)
Quarter: 2007Q2

REPORT INFORMATION
  Report Type: 
  Country: None (occurrence: None)
  Receive Date: 20070607
  Receipt Date: 20070601
  Transmission Date: 20071010
  Serious: Yes (Other)
  Sender: FDA-Public Use
  Company Number: PHEH2007US06271

PATIENT
  Age: 63 Year
  Sex: Female

DRUGS (13)
  1. COREG [Concomitant]
  2. DIOVAN [Concomitant]
  3. IMDUR [Concomitant]
  4. ASPIRIN [Concomitant]
     Dosage: 81 MG, UNK
  5. LASIX [Concomitant]
  6. PROTONIX [Concomitant]
  7. POTASSIUM ACETATE [Concomitant]
  8. CRESTOR [Concomitant]
  9. SPIRONOLACTONE [Concomitant]
  10. ZETIA [Concomitant]
  11. INSULIN [Concomitant]
  12. NITROGLYCERIN [Concomitant]
  13. ZELNORM [Suspect]
     Indication: IRRITABLE BOWEL SYNDROME
     Dosage: 6 MG, BID
     Route: 048
     Dates: end: 20070420

REACTIONS (5)
  - ANGINA PECTORIS [None]
  - IMPLANTABLE DEFIBRILLATOR INSERTION [None]
  - MUSCULOSKELETAL PAIN [None]
  - MYOCARDIAL INFARCTION [None]
  - NECK PAIN [None]
